FAERS Safety Report 4534903-4 (Version None)
Quarter: 2004Q4

REPORT INFORMATION
  Report Type: 
  Country: None (occurrence: None)
  Receive Date: 20041222
  Receipt Date: 20040720
  Transmission Date: 20050328
  Serious: No
  Sender: FDA-Public Use
  Company Number: US-BRISTOL-MYERS SQUIBB COMPANY-12646162

PATIENT
  Age: 62 Year
  Sex: Male
  Weight: 89 kg

DRUGS (7)
  1. PRAVACHOL [Suspect]
     Indication: BLOOD CHOLESTEROL INCREASED
     Route: 048
  2. VITAMIN E [Concomitant]
  3. MULTIVITAMIN [Concomitant]
  4. ENTERIC ASPIRIN [Concomitant]
  5. CHONDROITIN + GLUCOSAMINE [Concomitant]
  6. VITAMIN B COMPLEX CAP [Concomitant]
  7. CALTRATE [Concomitant]

REACTIONS (4)
  - ARTHRALGIA [None]
  - ASTHENIA [None]
  - PAIN [None]
  - TREMOR [None]
